FAERS Safety Report 15639905 (Version 1)
Quarter: 2018Q4

REPORT INFORMATION
  Report Type: Spontaneous
  Country: US (occurrence: US)
  Receive Date: 20181120
  Receipt Date: 20181120
  Transmission Date: 20190205
  Serious: Yes (Hospitalization)
  Sender: FDA-Public Use
  Company Number: US-SA-2018SA317637

PATIENT
  Age: 66 Year
  Sex: Female
  Weight: 87.07 kg

DRUGS (6)
  1. OXALIPLATIN. [Suspect]
     Active Substance: OXALIPLATIN
     Indication: PANCREATIC CARCINOMA
     Dosage: 95 MG, QOW
     Route: 042
     Dates: start: 20180725, end: 20180725
  2. OXALIPLATIN. [Suspect]
     Active Substance: OXALIPLATIN
     Dosage: 95 MG, QOW
     Route: 042
     Dates: start: 20181017, end: 20181017
  3. FLUOROURACIL. [Suspect]
     Active Substance: FLUOROURACIL
     Indication: PANCREATIC CARCINOMA
     Dosage: 3366 MG, QOW
     Route: 042
     Dates: start: 20180725, end: 20180725
  4. FLUOROURACIL. [Suspect]
     Active Substance: FLUOROURACIL
     Dosage: 3366 MG, QOW
     Route: 042
     Dates: start: 20181017, end: 20181017
  5. IRINOTECAN [Suspect]
     Active Substance: IRINOTECAN
     Indication: PANCREATIC CARCINOMA
     Dosage: 281 MG, QOW
     Route: 042
     Dates: start: 20180725, end: 20180725
  6. IRINOTECAN [Suspect]
     Active Substance: IRINOTECAN
     Dosage: 281 MG, QOW
     Route: 042
     Dates: start: 20181017, end: 20181017

REACTIONS (8)
  - Confusional state [Unknown]
  - Hypertension [Unknown]
  - Amnesia [Unknown]
  - Depressed level of consciousness [Unknown]
  - Vomiting [Unknown]
  - Transient ischaemic attack [Recovered/Resolved]
  - Nausea [Unknown]
  - Headache [Unknown]

NARRATIVE: CASE EVENT DATE: 20181028
